FAERS Safety Report 14511952 (Version 1)
Quarter: 2018Q1

REPORT INFORMATION
  Report Type: Spontaneous
  Country: US (occurrence: US)
  Receive Date: 20180209
  Receipt Date: 20180209
  Transmission Date: 20180509
  Serious: Yes (Life-Threatening, Hospitalization)
  Sender: FDA-Public Use
  Company Number: US-ASTRAZENECA-2018SE15040

PATIENT
  Age: 23362 Day
  Sex: Male
  Weight: 113.4 kg

DRUGS (11)
  1. BRILINTA [Suspect]
     Active Substance: TICAGRELOR
     Indication: MYOCARDIAL INFARCTION
     Route: 048
     Dates: start: 2017, end: 20180201
  2. BRILINTA [Suspect]
     Active Substance: TICAGRELOR
     Indication: STENT PLACEMENT
     Route: 048
     Dates: start: 2017, end: 20180201
  3. PRILOSEC [Suspect]
     Active Substance: OMEPRAZOLE MAGNESIUM
     Indication: GASTROOESOPHAGEAL REFLUX DISEASE
     Route: 048
  4. PLAVIX [Concomitant]
     Active Substance: CLOPIDOGREL BISULFATE
     Indication: MYOCARDIAL INFARCTION
     Route: 048
     Dates: start: 20180201
  5. PLAVIX [Concomitant]
     Active Substance: CLOPIDOGREL BISULFATE
     Indication: STENT PLACEMENT
     Route: 048
     Dates: start: 20180201
  6. PRILOSEC [Suspect]
     Active Substance: OMEPRAZOLE MAGNESIUM
     Indication: GASTROOESOPHAGEAL REFLUX DISEASE
     Dosage: OMEPRAZOLE OTC
     Route: 048
  7. ATORVASTATIN [Concomitant]
     Active Substance: ATORVASTATIN
     Indication: BLOOD CHOLESTEROL ABNORMAL
     Dosage: 40.0MG UNKNOWN
     Route: 048
     Dates: start: 2017
  8. OMEPRAZOLE. [Suspect]
     Active Substance: OMEPRAZOLE
     Indication: GASTROOESOPHAGEAL REFLUX DISEASE
     Route: 048
  9. METOPROLOL. [Suspect]
     Active Substance: METOPROLOL
     Indication: BLOOD PRESSURE ABNORMAL
     Route: 048
     Dates: start: 2017
  10. ALPRAZOLAM. [Concomitant]
     Active Substance: ALPRAZOLAM
     Indication: ANXIETY
     Route: 048
  11. ASPIRIN. [Concomitant]
     Active Substance: ASPIRIN
     Indication: MYOCARDIAL INFARCTION
     Route: 048
     Dates: start: 2017

REACTIONS (14)
  - Myocardial infarction [Recovering/Resolving]
  - Anxiety [Not Recovered/Not Resolved]
  - Cholecystitis infective [Unknown]
  - Weight decreased [Unknown]
  - Blood cholesterol abnormal [Unknown]
  - Intervertebral disc compression [Unknown]
  - Bipolar disorder [Not Recovered/Not Resolved]
  - Pancreatitis [Unknown]
  - Tachycardia [Recovered/Resolved]
  - Limb discomfort [Unknown]
  - Amnesia [Unknown]
  - Blood pressure abnormal [Unknown]
  - Hypoaesthesia [Unknown]
  - Depression [Not Recovered/Not Resolved]

NARRATIVE: CASE EVENT DATE: 20171119
